FAERS Safety Report 9736652 (Version 1)
Quarter: 2013Q4

REPORT INFORMATION
  Report Type: Spontaneous
  Country: US (occurrence: US)
  Receive Date: 20131206
  Receipt Date: 20131206
  Transmission Date: 20140711
  Serious: No
  Sender: FDA-Public Use
  Company Number: US-GILEAD-2009-0022758

PATIENT
  Sex: Male
  Weight: 97.52 kg

DRUGS (21)
  1. LETAIRIS [Suspect]
     Indication: PULMONARY ARTERIAL HYPERTENSION
     Route: 048
     Dates: start: 20081128
  2. REVATIO [Concomitant]
  3. OXYGEN [Concomitant]
  4. ASPIRIN [Concomitant]
  5. LISINOPRIL [Concomitant]
  6. AMLODIPINE BESYLATE [Concomitant]
  7. FUROSEMIDE [Concomitant]
  8. FLONASE 0.05% [Concomitant]
  9. COMBIVENT [Concomitant]
  10. ALPRAZOLAM [Concomitant]
  11. ZYRTEC [Concomitant]
  12. ALENDRONATE SODIUM [Concomitant]
  13. ENULOSE [Concomitant]
  14. FLOMAX [Concomitant]
  15. MAG 64 [Concomitant]
  16. CYCLOSPORINE [Concomitant]
  17. URSODIOL [Concomitant]
  18. BACTRIM DS [Concomitant]
  19. POTASSIUM CHLORIDE [Concomitant]
  20. CALCIUM [Concomitant]
  21. OCSO MULTIVITAMIN [Concomitant]

REACTIONS (1)
  - Nasal congestion [Unknown]
